FAERS Safety Report 21071435 (Version 5)
Quarter: 2022Q3

REPORT INFORMATION
  Report Type: Report from Study
  Country: US (occurrence: US)
  Receive Date: 20220712
  Receipt Date: 20220921
  Transmission Date: 20221027
  Serious: Yes (Other)
  Sender: FDA-Public Use
  Company Number: US-NOVARTISPH-NVSC2022US156996

PATIENT
  Sex: Female

DRUGS (2)
  1. KESIMPTA [Suspect]
     Active Substance: OFATUMUMAB
     Indication: Multiple sclerosis
     Dosage: 0.4 ML, QW (LOADING DOSE)
     Route: 058
     Dates: start: 20220627
  2. KESIMPTA [Suspect]
     Active Substance: OFATUMUMAB
     Dosage: UNK (2ND LOADING DOSE)
     Route: 065
     Dates: start: 20220704

REACTIONS (7)
  - Multiple sclerosis relapse [Unknown]
  - Fatigue [Unknown]
  - Somnolence [Unknown]
  - Constipation [Unknown]
  - Dysuria [Unknown]
  - Product dose omission issue [Unknown]
  - Device malfunction [Unknown]
